FAERS Safety Report 4771707-1 (Version None)
Quarter: 2005Q3

REPORT INFORMATION
  Report Type: 
  Country: None (occurrence: None)
  Receive Date: 20050916
  Receipt Date: 20050803
  Transmission Date: 20060218
  Serious: Yes (Hospitalization)
  Sender: FDA-Public Use
  Company Number: 200512853FR

PATIENT
  Age: 12 Year
  Sex: Female

DRUGS (4)
  1. GARDENALE [Suspect]
     Route: 048
     Dates: start: 20050518
  2. LOVENOX [Suspect]
     Indication: PROPHYLAXIS
     Route: 058
     Dates: start: 20050501
  3. ZESTRIL [Suspect]
     Route: 048
     Dates: start: 20050429, end: 20050701
  4. CORGARD [Concomitant]
     Indication: HYPERTENSION
     Dates: end: 20050601

REACTIONS (2)
  - HEMIPARESIS [None]
  - NORMOCHROMIC NORMOCYTIC ANAEMIA [None]
